FAERS Safety Report 8551772-6 (Version None)
Quarter: 2012Q3

REPORT INFORMATION
  Report Type: 
  Country: None (occurrence: None)
  Receive Date: 20120730
  Receipt Date: 20120719
  Transmission Date: 20120928
  Serious: Yes (Hospitalization)
  Sender: FDA-Public Use
  Company Number: GB-TEVA-349215ISR

PATIENT
  Age: 40 Year
  Sex: Male

DRUGS (3)
  1. TRIMETHOPRIM [Suspect]
     Indication: URINARY TRACT INFECTION
     Route: 048
     Dates: start: 20120706, end: 20120707
  2. QVAR 40 [Concomitant]
  3. ALBUTEROL SULATE [Concomitant]

REACTIONS (4)
  - PYREXIA [None]
  - CONFUSIONAL STATE [None]
  - PETECHIAE [None]
  - PURPURA [None]
